FAERS Safety Report 8597981-1 (Version None)
Quarter: 2012Q3

REPORT INFORMATION
  Report Type: 
  Country: None (occurrence: None)
  Receive Date: 20120816
  Receipt Date: 20120814
  Transmission Date: 20120928
  Serious: Yes (Death)
  Sender: FDA-Public Use
  Company Number: US-PFIZER INC-2012167666

PATIENT
  Age: 82 Year
  Sex: Male

DRUGS (1)
  1. RAPAMUNE [Suspect]
     Indication: GASTROINTESTINAL STROMAL TUMOUR
     Dosage: 4 MG, DAILY
     Route: 048
     Dates: start: 20120516

REACTIONS (2)
  - COLON CANCER [None]
  - DISEASE PROGRESSION [None]
